FAERS Safety Report 18639226 (Version 2)
Quarter: 2021Q1

REPORT INFORMATION
  Report Type: Other
  Country: GB (occurrence: GB)
  Receive Date: 20201218
  Receipt Date: 20210211
  Transmission Date: 20210419
  Serious: Yes (Hospitalization, Other)
  Sender: FDA-Public Use
  Company Number: GB-ROCHE-2736456

PATIENT
  Sex: Female

DRUGS (1)
  1. ROACTEMRA [Suspect]
     Active Substance: TOCILIZUMAB
     Indication: RHEUMATOID ARTHRITIS
     Route: 058
     Dates: start: 201512

REACTIONS (3)
  - Pyrexia [Unknown]
  - Cellulitis [Unknown]
  - COVID-19 [Unknown]
